FAERS Safety Report 7668442-9 (Version None)
Quarter: 2011Q3

REPORT INFORMATION
  Report Type: 
  Country: None (occurrence: None)
  Receive Date: 20110808
  Receipt Date: 20110628
  Transmission Date: 20111222
  Serious: No
  Sender: FDA-Public Use
  Company Number: US-GLAXOSMITHKLINE-A0933440A

PATIENT
  Age: 14 Year
  Sex: Male

DRUGS (1)
  1. VELTIN [Suspect]
     Indication: PRODUCT USED FOR UNKNOWN INDICATION
     Route: 061

REACTIONS (2)
  - SKIN EXFOLIATION [None]
  - SKIN IRRITATION [None]
